FAERS Safety Report 5272842-4 (Version None)
Quarter: 2007Q1

REPORT INFORMATION
  Report Type: 
  Country: None (occurrence: None)
  Receive Date: 20070322
  Receipt Date: 20070316
  Transmission Date: 20070707
  Serious: Yes (Disabling)
  Sender: FDA-Public Use
  Company Number: US-PURDUE-USA_2007_0026796

PATIENT
  Age: 63 Year
  Sex: Male

DRUGS (2)
  1. HYDROMORPHONE HCL [Suspect]
     Indication: BACK PAIN
     Dosage: UNK, UNK
     Route: 037
     Dates: start: 20020401
  2. BUPIVACAINE [Suspect]
     Indication: BACK PAIN
     Dosage: UNK, UNK
     Dates: start: 20020401

REACTIONS (1)
  - MYELOPATHY [None]
